FAERS Safety Report 10085149 (Version 1)
Quarter: 2014Q2

REPORT INFORMATION
  Report Type: Spontaneous
  Country: US (occurrence: US)
  Receive Date: 20140417
  Receipt Date: 20140417
  Transmission Date: 20141212
  Serious: No
  Sender: FDA-Public Use
  Company Number: US-B.I. PHARMACEUTICALS,INC./RIDGEFIELD-2014-BI-16751BP

PATIENT
  Sex: Female
  Weight: 78 kg

DRUGS (5)
  1. COMBIVENT [Suspect]
     Indication: ASTHMA
     Dosage: DOSE PER APPLICATION: 18 MCG/103 MCG; DAILY DOSE: 36 MCG/200 MCG
     Route: 055
     Dates: start: 1996, end: 201309
  2. ADVAIR [Concomitant]
     Indication: ASTHMA
     Dosage: FORMULATION: INHALATION SPRAY
     Route: 055
  3. LOSARTAN [Concomitant]
     Indication: HYPERTENSION
     Dosage: 50 MG
     Route: 048
  4. ALPRAZOLAM [Concomitant]
     Indication: ANXIETY
     Dosage: 0.25 MG
     Route: 048
  5. PRISTIQ [Concomitant]
     Indication: ANXIETY
     Dosage: 50 MG
     Route: 048

REACTIONS (2)
  - Body height decreased [Recovered/Resolved]
  - Off label use [Unknown]
